FAERS Safety Report 21241098 (Version 1)
Quarter: 2022Q3

REPORT INFORMATION
  Report Type: Spontaneous
  Country: CA (occurrence: CA)
  Receive Date: 20220823
  Receipt Date: 20220823
  Transmission Date: 20221027
  Serious: Yes (Other)
  Sender: FDA-Public Use
  Company Number: CA-TEVA-2022-CA-2065735

PATIENT
  Age: 54 Year
  Sex: Female
  Weight: 97 kg

DRUGS (8)
  1. FLUTICASONE PROPIONATE [Suspect]
     Active Substance: FLUTICASONE PROPIONATE
     Indication: Upper respiratory tract infection
     Dosage: 500 MICROGRAM DAILY;
  2. FLUTICASONE [Suspect]
     Active Substance: FLUTICASONE
     Indication: Upper respiratory tract infection
     Dosage: 500 MICROGRAM DAILY;
  3. ALBUTEROL [Suspect]
     Active Substance: ALBUTEROL
     Indication: Upper respiratory tract infection
     Dosage: 600 MICROGRAM DAILY;
  4. ALBUTEROL SULFATE [Suspect]
     Active Substance: ALBUTEROL SULFATE
     Indication: Upper respiratory tract infection
     Dosage: 600 MICROGRAM DAILY;
  5. ALBUTEROL SULFATE [Suspect]
     Active Substance: ALBUTEROL SULFATE
     Dosage: 600 MICROGRAM DAILY;
  6. FLOVENT [Suspect]
     Active Substance: FLUTICASONE PROPIONATE
     Indication: Upper respiratory tract infection
     Route: 065
  7. FLOVENT [Suspect]
     Active Substance: FLUTICASONE PROPIONATE
     Indication: Sinusitis
     Dosage: 500 MICROGRAM DAILY;  THERAPY DURATION : 1.0 DAYS
  8. AMOXICILLIN [Concomitant]
     Active Substance: AMOXICILLIN
     Indication: Sinusitis
     Dosage: 2000 MILLIGRAM DAILY;  THERAPY DURATION : 10.0 DAYS
     Route: 048

REACTIONS (4)
  - Headache [Recovered/Resolved]
  - Nausea [Recovered/Resolved]
  - Oral pain [Recovered/Resolved]
  - Oropharyngeal pain [Recovered/Resolved]
